FAERS Safety Report 6854492-9 (Version None)
Quarter: 2010Q3

REPORT INFORMATION
  Report Type: 
  Country: None (occurrence: None)
  Receive Date: 20100717
  Receipt Date: 20080212
  Transmission Date: 20110219
  Serious: Yes (Other)
  Sender: FDA-Public Use
  Company Number: US-PFIZER INC-2007106386

PATIENT
  Age: 53 Year
  Sex: Male

DRUGS (3)
  1. CHANTIX [Suspect]
     Indication: SMOKING CESSATION THERAPY
     Route: 048
     Dates: start: 20071029
  2. ZOLOFT [Concomitant]
     Indication: MAJOR DEPRESSION
  3. DIAZEPAM [Concomitant]
     Dosage: 5 EVERY 1 DAYS

REACTIONS (2)
  - NERVOUSNESS [None]
  - SUICIDAL IDEATION [None]
